FAERS Safety Report 26006908 (Version 5)
Quarter: 2025Q4

REPORT INFORMATION
  Report Type: Spontaneous
  Country: GB (occurrence: GB)
  Receive Date: 20251106
  Receipt Date: 20251225
  Transmission Date: 20260118
  Serious: Yes (Other)
  Sender: ABBVIE
  Company Number: GB-AMGEN-GBRSP2025202130

PATIENT
  Age: 56 Year
  Sex: Female

DRUGS (12)
  1. ADALIMUMAB [Suspect]
     Active Substance: ADALIMUMAB
     Indication: Rheumatoid arthritis
     Dosage: FORM STRENGTH: 40 MILLIGRAM, EVERY 2 WEEKS
     Route: 058
     Dates: start: 20230911
  2. ADALIMUMAB [Suspect]
     Active Substance: ADALIMUMAB
     Dosage: FORM STRENGTH: 240 MILLIGRAM, QWK (120 DF, QW (40.000DF TIW)
     Route: 058
  3. ADALIMUMAB [Suspect]
     Active Substance: ADALIMUMAB
     Dosage: FORM STRENGTH: 80 MILLIGRAM, ONCE A DAY
     Route: 058
     Dates: start: 20230911
  4. ADALIMUMAB [Suspect]
     Active Substance: ADALIMUMAB
     Dosage: FORM STRENGTH - 120 MILLIGRAM, QWK
     Route: 058
  5. ADALIMUMAB [Suspect]
     Active Substance: ADALIMUMAB
     Dosage: FORM STRENGTH: 160 MILLIGRAM, QWK
     Route: 058
  6. CLOPIDOGREL [Suspect]
     Active Substance: CLOPIDOGREL BISULFATE
     Indication: Product used for unknown indication
     Route: 065
  7. HYRIMOZ [Suspect]
     Active Substance: ADALIMUMAB-ADAZ
     Indication: Rheumatoid arthritis
     Route: 058
     Dates: start: 20230911
  8. HYRIMOZ [Suspect]
     Active Substance: ADALIMUMAB-ADAZ
     Indication: Rheumatoid arthritis
     Route: 058
     Dates: start: 20230911
  9. HYRIMOZ [Suspect]
     Active Substance: ADALIMUMAB-ADAZ
     Indication: Rheumatoid arthritis
     Route: 058
  10. HYRIMOZ [Suspect]
     Active Substance: ADALIMUMAB-ADAZ
     Indication: Rheumatoid arthritis
     Dosage: FORM STRENGTH - 240 MILLIGRAM, QW
     Route: 058
  11. HYRIMOZ [Suspect]
     Active Substance: ADALIMUMAB-ADAZ
     Indication: Rheumatoid arthritis
     Dosage: FORM STRENGTH -  120 MILLIGRAM, QW
     Route: 058
  12. HYRIMOZ [Suspect]
     Active Substance: ADALIMUMAB-ADAZ
     Indication: Rheumatoid arthritis
     Dosage: FORM STRENGTH - 160 MILLIGRAM, QW
     Route: 058

REACTIONS (9)
  - Gastrooesophageal reflux disease [Not Recovered/Not Resolved]
  - Depression [Recovering/Resolving]
  - Hypoglycaemia [Unknown]
  - Constipation [Unknown]
  - Fatigue [Unknown]
  - Abdominal pain [Unknown]
  - Contusion [Unknown]
  - Decreased appetite [Recovering/Resolving]
  - Drug ineffective [Unknown]
